FAERS Safety Report 23802865 (Version 3)
Quarter: 2024Q2

REPORT INFORMATION
  Report Type: Spontaneous
  Country: US (occurrence: US)
  Receive Date: 20240501
  Receipt Date: 20240612
  Transmission Date: 20240715
  Serious: Yes (Other)
  Sender: FDA-Public Use
  Company Number: US-AUROBINDO-AUR-APL-2024-020443

PATIENT
  Age: 82 Year
  Sex: Female
  Weight: 76.6 kg

DRUGS (1)
  1. ZOLPIDEM TARTRATE [Suspect]
     Active Substance: ZOLPIDEM TARTRATE
     Indication: Fibromyalgia
     Dosage: 1 DOSAGE FORM, AT BED TIME
     Route: 065
     Dates: start: 20240414

REACTIONS (8)
  - Burn oral cavity [Unknown]
  - Pruritus [Unknown]
  - Erythema [Unknown]
  - Tongue disorder [Unknown]
  - Headache [Unknown]
  - Abdominal discomfort [Unknown]
  - Drug ineffective [Unknown]
  - Unevaluable event [Unknown]

NARRATIVE: CASE EVENT DATE: 20240415
